FAERS Safety Report 11206288 (Version 1)
Quarter: 2015Q2

REPORT INFORMATION
  Report Type: Spontaneous
  Country: IT (occurrence: IT)
  Receive Date: 20150622
  Receipt Date: 20150622
  Transmission Date: 20150821
  Serious: Yes (Other)
  Sender: FDA-Public Use
  Company Number: IT-HORIZON-BUP-0011-2015

PATIENT
  Age: 18 Year
  Sex: Male
  Weight: 50 kg

DRUGS (4)
  1. RIFAMPICIN [Concomitant]
     Active Substance: RIFAMPIN
     Indication: CHOLESTASIS
     Route: 048
  2. DEURSIL [Concomitant]
     Active Substance: URSODIOL
     Indication: CHOLESTASIS
     Route: 048
  3. VITAMIN A PALMITATE [Concomitant]
     Active Substance: VITAMIN A PALMITATE
     Indication: CHOLESTASIS
     Route: 030
  4. AMMONAPS POWDER [Suspect]
     Active Substance: SODIUM PHENYLBUTYRATE
     Indication: CHOLESTASIS
     Route: 048
     Dates: start: 20141016, end: 20141031

REACTIONS (6)
  - Irritability [Recovered/Resolved]
  - Fatigue [Recovered/Resolved]
  - Headache [Recovered/Resolved]
  - Off label use [Unknown]
  - Asthenia [Recovered/Resolved]
  - Nausea [Recovered/Resolved]

NARRATIVE: CASE EVENT DATE: 20141016
